FAERS Safety Report 7535591-5 (Version None)
Quarter: 2011Q2

REPORT INFORMATION
  Report Type: 
  Country: None (occurrence: None)
  Receive Date: 20110524
  Receipt Date: 20110418
  Transmission Date: 20111010
  Serious: No
  Sender: FDA-Public Use
  Company Number: 031700

PATIENT
  Sex: Female
  Weight: 83 kg

DRUGS (15)
  1. KLONOPIN [Concomitant]
  2. PROPRANOLOL /00030001/ [Concomitant]
  3. NEURONTIN [Concomitant]
  4. TORSEMIDE [Concomitant]
  5. ASACOL [Concomitant]
  6. VITAMIN B12 NOS [Concomitant]
  7. FERROUS SULFATE TAB [Concomitant]
  8. CIMZIA [Suspect]
     Indication: CROHN'S DISEASE
     Dosage: (SUBCUTANEOUS), (400 MG 1X/2 WEEKS SUBCUTANEOUS)
     Route: 058
     Dates: start: 20091201, end: 20100101
  9. CIMZIA [Suspect]
     Indication: CROHN'S DISEASE
     Dosage: (SUBCUTANEOUS), (400 MG 1X/2 WEEKS SUBCUTANEOUS)
     Route: 058
     Dates: start: 20110405, end: 20110401
  10. DICYCLOMINE [Concomitant]
  11. ROBAXIN [Concomitant]
  12. AMITRIPTYLINE HCL [Concomitant]
  13. KLOR-CON [Concomitant]
  14. FOLIC ACID [Concomitant]
  15. CARDIZEM [Concomitant]

REACTIONS (9)
  - CONFUSIONAL STATE [None]
  - LETHARGY [None]
  - VISION BLURRED [None]
  - PAIN IN EXTREMITY [None]
  - DIZZINESS [None]
  - HEADACHE [None]
  - HYPOAESTHESIA [None]
  - PAIN [None]
  - VISUAL IMPAIRMENT [None]
